FAERS Safety Report 7205419-1 (Version None)
Quarter: 2010Q4

REPORT INFORMATION
  Report Type: 
  Country: None (occurrence: None)
  Receive Date: 20101231
  Receipt Date: 20101220
  Transmission Date: 20110411
  Serious: Yes (Hospitalization, Other)
  Sender: FDA-Public Use
  Company Number: PHHY2010FR79756

PATIENT
  Sex: Male
  Weight: 99 kg

DRUGS (10)
  1. TASIGNA [Suspect]
     Indication: CHRONIC MYELOID LEUKAEMIA
     Dosage: 400 MG, BID
     Route: 048
     Dates: start: 20090115, end: 20101110
  2. NEORECORMON [Concomitant]
     Indication: ANAEMIA
     Route: 058
  3. TAMSULOSIN [Concomitant]
  4. DILTIAZEM [Concomitant]
  5. SIMVASTATIN [Concomitant]
  6. RAMIPRIL [Concomitant]
  7. LYRICA [Concomitant]
  8. PLAVIX [Concomitant]
  9. ZOLPIDEM [Concomitant]
  10. NEXIUM [Concomitant]

REACTIONS (7)
  - ARTERIAL THROMBOSIS LIMB [None]
  - ARTERITIS [None]
  - ATRIAL FIBRILLATION [None]
  - CEREBELLAR HAEMATOMA [None]
  - DIPLOPIA [None]
  - EXTREMITY NECROSIS [None]
  - TOE AMPUTATION [None]
